FAERS Safety Report 11665899 (Version 2)
Quarter: 2015Q4

REPORT INFORMATION
  Report Type: Spontaneous
  Country: US (occurrence: US)
  Receive Date: 20151027
  Receipt Date: 20151028
  Transmission Date: 20160304
  Serious: No
  Sender: FDA-Public Use
  Company Number: US-GLAXOSMITHKLINE-US2015151614

PATIENT
  Age: 56 Year
  Sex: Male

DRUGS (1)
  1. ABREVA [Suspect]
     Active Substance: DOCOSANOL
     Indication: VIRAL INFECTION
     Dosage: UNK
     Dates: start: 20151019, end: 20151022

REACTIONS (2)
  - Product quality issue [Unknown]
  - Product use issue [Unknown]
